FAERS Safety Report 9711245 (Version 1)
Quarter: 2013Q4

REPORT INFORMATION
  Report Type: Spontaneous
  Country: US (occurrence: US)
  Receive Date: 20131126
  Receipt Date: 20131126
  Transmission Date: 20140711
  Serious: No
  Sender: FDA-Public Use
  Company Number: US-BRISTOL-MYERS SQUIBB COMPANY-19047877

PATIENT
  Age: 52 Year
  Sex: Female

DRUGS (1)
  1. BYDUREON [Suspect]
     Dosage: THERAPY:3-4 MNTHS
     Route: 058

REACTIONS (3)
  - Dysphonia [Recovered/Resolved]
  - Constipation [Recovered/Resolved]
  - Nodule [Recovered/Resolved]
